FAERS Safety Report 16833335 (Version 1)
Quarter: 2019Q3

REPORT INFORMATION
  Report Type: Spontaneous
  Country: IL (occurrence: IL)
  Receive Date: 20190920
  Receipt Date: 20190920
  Transmission Date: 20191005
  Serious: Yes (Hospitalization, Other)
  Sender: FDA-Public Use
  Company Number: IL-ASTRAZENECA-2019SF31460

PATIENT
  Age: 24285 Day
  Sex: Female

DRUGS (2)
  1. FORXIGA [Suspect]
     Active Substance: DAPAGLIFLOZIN
     Route: 048
  2. FORXIGA [Suspect]
     Active Substance: DAPAGLIFLOZIN
     Route: 048

REACTIONS (1)
  - Diabetic ketoacidosis [Unknown]

NARRATIVE: CASE EVENT DATE: 20190630
